FAERS Safety Report 15929497 (Version 2)
Quarter: 2019Q1

REPORT INFORMATION
  Report Type: Spontaneous
  Country: DE (occurrence: DE)
  Receive Date: 20190206
  Receipt Date: 20190222
  Transmission Date: 20190417
  Serious: Yes (Death, Hospitalization)
  Sender: FDA-Public Use
  Company Number: DE-BAUSCH-BL-2019-003386

PATIENT
  Age: 93 Year
  Sex: Female

DRUGS (12)
  1. MCP [Concomitant]
     Active Substance: METOCLOPRAMIDE HYDROCHLORIDE
     Indication: ENTERAL NUTRITION
     Dosage: DOSE 2 IN 1 DAYS, 1-1; LONG-TERM MEDICATION
     Route: 065
     Dates: start: 2016
  2. DOMPERIDON [Interacting]
     Active Substance: DOMPERIDONE
     Indication: NAUSEA
     Dosage: RATIO PHARM.
     Route: 065
  3. ASS PROTECT 100 [Concomitant]
     Active Substance: ASPIRIN
     Indication: CEREBROVASCULAR ACCIDENT PROPHYLAXIS
     Dosage: 0-1-0
     Route: 065
     Dates: start: 1997
  4. OMEP MUT [Concomitant]
     Active Substance: OMEPRAZOLE
     Indication: PRODUCT USED FOR UNKNOWN INDICATION
  5. MOXIFLOXACIN. [Suspect]
     Active Substance: MOXIFLOXACIN
     Indication: URINARY TRACT INFECTION
     Dosage: 2 TABLETS (MANUFACTURER UNKNOWN) RECEIVED FROM PHYSICIAN AT A HOME VISIT , AFTERWARDS MOXOFLOXACIN H
     Route: 065
     Dates: start: 20181215, end: 201812
  6. TORSEMID [Concomitant]
     Active Substance: TORSEMIDE
     Indication: HYPERTENSION
     Dosage: 1/4 TABLET
  7. ASS PROTECT 100 [Concomitant]
     Active Substance: ASPIRIN
     Indication: ISCHAEMIC HEART DISEASE PROPHYLAXIS
     Route: 065
  8. METOHEXAL [Concomitant]
     Active Substance: METOPROLOL
     Indication: HYPERTENSION
     Dosage: HALF TABLET
  9. DIAZEPAM. [Suspect]
     Active Substance: DIAZEPAM
     Indication: PRODUCT USED FOR UNKNOWN INDICATION
     Route: 065
  10. HEPARIN [Concomitant]
     Active Substance: HEPARIN SODIUM
     Indication: PRODUCT USED FOR UNKNOWN INDICATION
     Dosage: 50000IU AND 750 ML IN ALTERNATION; 0-1-0
     Route: 065
     Dates: start: 2016
  11. MOXIFLOXACIN HEXAL [Interacting]
     Active Substance: MOXIFLOXACIN HYDROCHLORIDE
     Indication: URINARY TRACT INFECTION
     Dosage: 400 MILLIGRAM DAILY
     Route: 048
     Dates: start: 20181215, end: 20181219
  12. DOMPERIDON [Interacting]
     Active Substance: DOMPERIDONE
     Indication: VOMITING
     Dosage: RATIO PHARM.
     Route: 048
     Dates: start: 2015, end: 2018

REACTIONS (15)
  - Mental disorder [Unknown]
  - Confusional state [Unknown]
  - Abnormal behaviour [Recovering/Resolving]
  - Drug interaction [Unknown]
  - Hallucination [Recovering/Resolving]
  - Oral discharge [Unknown]
  - Panic reaction [Unknown]
  - Logorrhoea [Recovering/Resolving]
  - Pneumonia aspiration [Fatal]
  - Pyrexia [Unknown]
  - Heart rate increased [Recovering/Resolving]
  - Scatolia [Recovering/Resolving]
  - Psychomotor hyperactivity [Recovering/Resolving]
  - Crying [Recovering/Resolving]
  - Anxiety disorder [Recovering/Resolving]

NARRATIVE: CASE EVENT DATE: 201812
